FAERS Safety Report 8463713-0 (Version None)
Quarter: 2012Q2

REPORT INFORMATION
  Report Type: 
  Country: None (occurrence: None)
  Receive Date: 20120625
  Receipt Date: 20120120
  Transmission Date: 20120825
  Serious: Yes (Other)
  Sender: FDA-Public Use
  Company Number: CHPA2012US012737

PATIENT
  Sex: Female

DRUGS (1)
  1. EXCEDRIN (MIGRAINE) [Suspect]
     Indication: PAIN
     Dosage: 2 UNK, UNK
     Route: 048

REACTIONS (4)
  - ASTHENIA [None]
  - OFF LABEL USE [None]
  - PALLOR [None]
  - INTESTINAL HAEMORRHAGE [None]
